FAERS Safety Report 8321697-X (Version None)
Quarter: 2012Q2

REPORT INFORMATION
  Report Type: 
  Country: None (occurrence: None)
  Receive Date: 20120426
  Receipt Date: 20120416
  Transmission Date: 20120825
  Serious: Yes (Hospitalization)
  Sender: FDA-Public Use
  Company Number: 2012S1000183

PATIENT
  Age: 82 Year
  Sex: Female

DRUGS (1)
  1. LIVALO [Suspect]
     Indication: DYSLIPIDAEMIA
     Dosage: 1 MG; 1X; PO
     Route: 048

REACTIONS (7)
  - MALAISE [None]
  - PNEUMONIA [None]
  - GENERALISED OEDEMA [None]
  - RHABDOMYOLYSIS [None]
  - RENAL FAILURE ACUTE [None]
  - DEHYDRATION [None]
  - INFECTION [None]
